FAERS Safety Report 7785603-9 (Version None)
Quarter: 2011Q3

REPORT INFORMATION
  Report Type: 
  Country: None (occurrence: None)
  Receive Date: 20110929
  Receipt Date: 20110919
  Transmission Date: 20111222
  Serious: Yes (Death, Hospitalization)
  Sender: FDA-Public Use
  Company Number: DE-RANBAXY-2009RR-22607

PATIENT
  Age: 95 Year
  Sex: Male
  Weight: 60 kg

DRUGS (11)
  1. ASPIRIN [Concomitant]
     Indication: PROPHYLAXIS
     Dosage: 50 MG, QD
     Route: 048
     Dates: start: 20000101, end: 20081208
  2. TORSEMIDE [Concomitant]
     Indication: HYPERTENSION
     Dosage: 5 MG, QD
     Route: 048
     Dates: start: 20000101, end: 20081201
  3. LASIX [Concomitant]
     Dosage: 40 MG, UNK
     Route: 042
     Dates: start: 20081201
  4. RAMIPRIL HEXAL COMP. 2.5MG/ 12.5 MG TABLETTEN [Concomitant]
     Indication: HYPERTENSION
     Dosage: 2.5 MG, QD
     Route: 048
     Dates: start: 20000101, end: 20081201
  5. NOVALGIN [Concomitant]
     Indication: PRODUCT USED FOR UNKNOWN INDICATION
     Dosage: 20 GTT, TID
     Route: 065
  6. CARVEDILOL [Suspect]
     Indication: HYPERTENSION
     Dosage: 6.25 MG, BID
     Route: 048
     Dates: start: 20000101, end: 20081201
  7. GLYBURIDE [Concomitant]
     Indication: TYPE 2 DIABETES MELLITUS
     Dosage: 3.5-0-1.75
     Route: 048
     Dates: start: 20000101
  8. LASIX [Concomitant]
     Indication: HYPERTENSION
     Dosage: 20 MG, QD
     Route: 048
     Dates: start: 20000101, end: 20081201
  9. RAMIPRIL HEXAL COMP. 2.5MG/ 12.5 MG TABLETTEN [Concomitant]
     Dosage: 1.25 MG, QD
     Dates: start: 20081203
  10. JONOSTERIL [Concomitant]
     Indication: PRODUCT USED FOR UNKNOWN INDICATION
     Dosage: 60 MG, UNK
     Route: 065
  11. DIGITOXIN TAB [Suspect]
     Indication: CARDIAC FAILURE CHRONIC
     Dosage: 0.01 MG, QD
     Route: 048
     Dates: start: 20000101, end: 20081201

REACTIONS (1)
  - BRADYARRHYTHMIA [None]
